FAERS Safety Report 21861541 (Version 1)
Quarter: 2023Q1

REPORT INFORMATION
  Report Type: Spontaneous
  Country: US (occurrence: US)
  Receive Date: 20230113
  Receipt Date: 20230113
  Transmission Date: 20230417
  Serious: No
  Sender: FDA-Public Use
  Company Number: US-PFIZER INC-202300014791

PATIENT
  Age: 58 Year
  Sex: Female
  Weight: 60.7 kg

DRUGS (2)
  1. HYDROMORPHONE HYDROCHLORIDE [Suspect]
     Active Substance: HYDROMORPHONE HYDROCHLORIDE
     Indication: Pain
     Dosage: 2.702 MG, 3X/DAY (PRN)
     Route: 037
  2. CLONIDINE [Suspect]
     Active Substance: CLONIDINE
     Dosage: 27.02 MG, 3X/DAY (PRN)
     Route: 037

REACTIONS (1)
  - Therapeutic product effect decreased [Unknown]
